FAERS Safety Report 16939908 (Version 1)
Quarter: 2019Q4

REPORT INFORMATION
  Report Type: Spontaneous
  Country: US (occurrence: US)
  Receive Date: 20191021
  Receipt Date: 20191021
  Transmission Date: 20200122
  Serious: Yes (Other)
  Sender: FDA-Public Use
  Company Number: US-NOVOPROD-690761

PATIENT
  Age: 70 Year
  Sex: Male

DRUGS (1)
  1. OZEMPIC [Suspect]
     Active Substance: SEMAGLUTIDE
     Indication: TYPE 2 DIABETES MELLITUS
     Dosage: 0.25 MG, QW
     Route: 058
     Dates: start: 20190911, end: 20190918

REACTIONS (2)
  - Retinal degeneration [Not Recovered/Not Resolved]
  - Vitreous detachment [Unknown]

NARRATIVE: CASE EVENT DATE: 2019
